FAERS Safety Report 14987725 (Version 1)
Quarter: 2018Q2

REPORT INFORMATION
  Report Type: Spontaneous
  Country: US (occurrence: US)
  Receive Date: 20180518
  Receipt Date: 20180518
  Transmission Date: 20180711
  Serious: Yes (Hospitalization)
  Sender: FDA-Public Use
  Company Number: None

PATIENT
  Age: 32 Year
  Sex: Male
  Weight: 180 kg

DRUGS (1)
  1. INVEGA SUSTENNA [Suspect]
     Active Substance: PALIPERIDONE PALMITATE
     Indication: SCHIZOPHRENIA
     Dosage: ?          OTHER FREQUENCY:Q28 DAYS;?
     Route: 030
     Dates: start: 20170801, end: 20180420

REACTIONS (3)
  - Pyrexia [None]
  - Malaise [None]
  - Tachycardia [None]

NARRATIVE: CASE EVENT DATE: 20180420
